FAERS Safety Report 9127291 (Version 3)
Quarter: 2016Q4

REPORT INFORMATION
  Report Type: Report from Study
  Country: GB (occurrence: GB)
  Receive Date: 20130122
  Receipt Date: 20161222
  Transmission Date: 20170207
  Serious: Yes (Hospitalization, Other)
  Sender: FDA-Public Use
  Company Number: GB-BAUSCH-BL-2013-000208

PATIENT
  Age: 16 Year
  Sex: Female
  Weight: 38.8 kg

DRUGS (62)
  1. APREPITANT. [Suspect]
     Active Substance: APREPITANT
     Route: 048
     Dates: start: 20121130, end: 20121130
  2. IFOSFAMIDE. [Suspect]
     Active Substance: IFOSFAMIDE
     Indication: NEOPLASM MALIGNANT
     Route: 042
     Dates: start: 20120921, end: 20120923
  3. ONDANSETRON [Suspect]
     Active Substance: ONDANSETRON
     Route: 065
     Dates: start: 20121018, end: 20121018
  4. ONDANSETRON [Suspect]
     Active Substance: ONDANSETRON
     Route: 065
     Dates: start: 20121019, end: 20121019
  5. ONDANSETRON [Suspect]
     Active Substance: ONDANSETRON
     Route: 042
     Dates: start: 20120924, end: 20120924
  6. MACROGOL [Concomitant]
     Active Substance: POLYETHYLENE GLYCOLS
     Indication: CONSTIPATION
     Route: 048
     Dates: start: 20121007
  7. OXYCODONE [Concomitant]
     Active Substance: OXYCODONE
     Indication: PAIN
     Route: 048
     Dates: start: 20121122, end: 20121201
  8. PARACETAMOL [Concomitant]
     Active Substance: ACETAMINOPHEN
     Indication: ANALGESIC THERAPY
     Route: 048
     Dates: start: 20121005, end: 20121006
  9. RED BLOOD CELLS [Concomitant]
     Active Substance: HUMAN RED BLOOD CELL
     Indication: HAEMOGLOBIN DECREASED
     Route: 042
     Dates: start: 20120924, end: 20120924
  10. APREPITANT. [Suspect]
     Active Substance: APREPITANT
     Route: 048
     Dates: start: 20121108, end: 20121108
  11. ONDANSETRON [Suspect]
     Active Substance: ONDANSETRON
     Indication: PROPHYLAXIS OF NAUSEA AND VOMITING
     Route: 042
     Dates: start: 20121007, end: 20121007
  12. ONDANSETRON [Suspect]
     Active Substance: ONDANSETRON
     Route: 065
  13. CO-AMOXICLAV [Concomitant]
     Active Substance: AMOXICILLIN\CLAVULANIC ACID
     Indication: INFECTION
     Route: 048
     Dates: start: 20121030, end: 201211
  14. CO-AMOXICLAV [Concomitant]
     Active Substance: AMOXICILLIN\CLAVULANIC ACID
     Indication: MUCOSAL INFLAMMATION
     Route: 048
  15. CYCLIZINE [Concomitant]
     Active Substance: CYCLIZINE
     Indication: NAUSEA
     Route: 048
     Dates: start: 20120923, end: 20120923
  16. CODEINE [Concomitant]
     Active Substance: CODEINE
     Indication: ANALGESIC THERAPY
     Route: 048
     Dates: start: 20121005, end: 20121005
  17. DEXAMETHASONE. [Suspect]
     Active Substance: DEXAMETHASONE
     Indication: PROPHYLAXIS OF NAUSEA AND VOMITING
     Route: 042
     Dates: start: 20120921, end: 20120924
  18. CODEINE PHOSPHATE [Concomitant]
     Active Substance: CODEINE PHOSPHATE
     Indication: PAIN
     Route: 048
     Dates: start: 20120830
  19. CODEINE PHOSPHATE [Concomitant]
     Active Substance: CODEINE PHOSPHATE
     Dosage: 1/1DAY
     Route: 048
     Dates: start: 20121005, end: 20121005
  20. CYCLIZINE [Concomitant]
     Active Substance: CYCLIZINE
     Indication: ANTIEMETIC SUPPORTIVE CARE
     Route: 048
     Dates: start: 20121017, end: 20121017
  21. FLOXACILLIN [Concomitant]
     Active Substance: FLUCLOXACILLIN
     Indication: PERIORBITAL CELLULITIS
     Route: 048
     Dates: start: 20121010, end: 20121019
  22. HEPARIN [Concomitant]
     Active Substance: HEPARIN SODIUM
     Route: 042
  23. APREPITANT. [Suspect]
     Active Substance: APREPITANT
     Route: 048
     Dates: start: 20121017, end: 20121017
  24. APREPITANT. [Suspect]
     Active Substance: APREPITANT
     Route: 048
     Dates: start: 20121019, end: 20121019
  25. IFOSFAMIDE. [Suspect]
     Active Substance: IFOSFAMIDE
     Indication: CHEMOTHERAPY
     Route: 042
  26. FENTANYL. [Concomitant]
     Active Substance: FENTANYL
     Indication: PAIN
     Dosage: AS NEEDED
     Route: 065
     Dates: start: 20121030
  27. LIDOCAINE. [Concomitant]
     Active Substance: LIDOCAINE
     Indication: ANAESTHESIA
     Route: 061
     Dates: start: 20121006, end: 20121016
  28. POLYETHYLENE GLYCOL [Concomitant]
     Active Substance: POLYETHYLENE GLYCOLS
     Indication: CONSTIPATION
     Route: 048
     Dates: start: 20120830, end: 201209
  29. APREPITANT. [Suspect]
     Active Substance: APREPITANT
     Indication: PROPHYLAXIS OF NAUSEA AND VOMITING
     Route: 048
     Dates: start: 20121107, end: 20121107
  30. APREPITANT. [Suspect]
     Active Substance: APREPITANT
     Route: 048
     Dates: start: 20120922, end: 20120922
  31. DOXORUBICIN [Suspect]
     Active Substance: DOXORUBICIN
     Indication: CHEMOTHERAPY
     Route: 042
     Dates: start: 20121017, end: 20121018
  32. DOXORUBICIN [Suspect]
     Active Substance: DOXORUBICIN
     Route: 042
     Dates: start: 20120822, end: 20120923
  33. IFOSFAMIDE. [Suspect]
     Active Substance: IFOSFAMIDE
     Indication: CHEMOTHERAPY
     Route: 042
  34. ONDANSETRON [Suspect]
     Active Substance: ONDANSETRON
     Route: 042
     Dates: start: 20120921, end: 20120924
  35. ONDANSETRON [Suspect]
     Active Substance: ONDANSETRON
     Route: 065
     Dates: start: 20120926, end: 20120927
  36. OXYCODONE [Concomitant]
     Active Substance: OXYCODONE
     Route: 042
     Dates: start: 20121030, end: 20121030
  37. TINZAPARIN [Concomitant]
     Active Substance: TINZAPARIN
     Indication: PRODUCT USED FOR UNKNOWN INDICATION
     Route: 065
     Dates: start: 20121012
  38. APREPITANT. [Suspect]
     Active Substance: APREPITANT
     Route: 048
     Dates: start: 20120921, end: 20120921
  39. ONDANSETRON [Suspect]
     Active Substance: ONDANSETRON
     Route: 065
     Dates: start: 20121017, end: 20121017
  40. CIPROFLOXACIN. [Concomitant]
     Active Substance: CIPROFLOXACIN
     Indication: INFECTION
     Route: 048
     Dates: start: 20121030, end: 201211
  41. HYPROMELLOSE [Concomitant]
     Active Substance: HYPROMELLOSES
     Indication: PRODUCT USED FOR UNKNOWN INDICATION
     Route: 047
     Dates: start: 20121019
  42. MESNA. [Concomitant]
     Active Substance: MESNA
     Route: 042
     Dates: start: 20120921, end: 20120924
  43. APREPITANT. [Suspect]
     Active Substance: APREPITANT
     Route: 048
     Dates: start: 20121109, end: 20121109
  44. APREPITANT. [Suspect]
     Active Substance: APREPITANT
     Route: 048
     Dates: start: 20120923, end: 20120923
  45. APREPITANT. [Suspect]
     Active Substance: APREPITANT
     Route: 048
     Dates: start: 20121128, end: 20121128
  46. APREPITANT. [Suspect]
     Active Substance: APREPITANT
     Route: 048
     Dates: start: 20121129, end: 20121129
  47. IFOSFAMIDE. [Suspect]
     Active Substance: IFOSFAMIDE
     Indication: NEOPLASM MALIGNANT
     Route: 042
     Dates: start: 20121017, end: 20121019
  48. CHLORHEXIDINE [Concomitant]
     Active Substance: CHLORHEXIDINE
     Indication: ANAESTHESIA
     Route: 061
     Dates: start: 20121006, end: 20121016
  49. CIPROFLOXACIN. [Concomitant]
     Active Substance: CIPROFLOXACIN
     Indication: MUCOSAL INFLAMMATION
     Route: 048
     Dates: start: 20121030, end: 201211
  50. COTRIMOXAZOLE [Concomitant]
     Active Substance: SULFAMETHOXAZOLE\TRIMETHOPRIM
     Indication: PRODUCT USED FOR UNKNOWN INDICATION
     Route: 065
     Dates: start: 201209
  51. COLOSTRUM [Concomitant]
     Indication: PRODUCT USED FOR UNKNOWN INDICATION
     Route: 065
     Dates: start: 201209
  52. BUSCOPAN [Concomitant]
     Active Substance: BUTYLSCOPOLAMINE BROMIDE
     Indication: PRODUCT USED FOR UNKNOWN INDICATION
     Route: 065
     Dates: start: 20121005, end: 20121008
  53. APREPITANT. [Suspect]
     Active Substance: APREPITANT
     Route: 048
     Dates: start: 20121018, end: 20121018
  54. ONDANSETRON [Suspect]
     Active Substance: ONDANSETRON
     Route: 065
     Dates: start: 20120925, end: 20120925
  55. ONDANSETRON [Suspect]
     Active Substance: ONDANSETRON
     Route: 065
     Dates: start: 20120927, end: 20120927
  56. DEXTROSE. [Concomitant]
     Active Substance: DEXTROSE
     Indication: PRODUCT USED FOR UNKNOWN INDICATION
     Route: 065
     Dates: start: 20121017, end: 20121019
  57. HEPARIN [Concomitant]
     Active Substance: HEPARIN SODIUM
     Indication: ANTICOAGULANT THERAPY
     Route: 042
     Dates: start: 20120914
  58. MESNA. [Concomitant]
     Active Substance: MESNA
     Indication: PROPHYLAXIS
     Route: 042
     Dates: start: 20121017, end: 20121019
  59. MESNA. [Concomitant]
     Active Substance: MESNA
     Route: 065
  60. NORETHISTERONE [Concomitant]
     Active Substance: NORETHINDRONE
     Indication: MENSTRUAL DISORDER
     Route: 048
     Dates: start: 20120903
  61. TEICOPLANIN [Concomitant]
     Active Substance: TEICOPLANIN
     Indication: DEVICE RELATED INFECTION
     Route: 042
     Dates: start: 20120915, end: 20120920
  62. CALCIUM CARBONATE. [Concomitant]
     Active Substance: CALCIUM CARBONATE
     Indication: PRODUCT USED FOR UNKNOWN INDICATION
     Route: 065
     Dates: start: 20121005, end: 20121009

REACTIONS (12)
  - Constipation [Recovered/Resolved]
  - Diarrhoea [Recovered/Resolved]
  - Periorbital cellulitis [Recovered/Resolved]
  - Vascular access complication [Recovered/Resolved]
  - Vena cava thrombosis [Not Recovered/Not Resolved]
  - Haemoglobin decreased [Not Recovered/Not Resolved]
  - Febrile neutropenia [Recovered/Resolved]
  - Complication associated with device [Unknown]
  - Abdominal pain [Recovered/Resolved]
  - Product use issue [Unknown]
  - Mucosal inflammation [Recovered/Resolved]
  - Neutropenia [Recovered/Resolved]

NARRATIVE: CASE EVENT DATE: 20121004
